FAERS Safety Report 13506096 (Version 1)
Quarter: 2017Q2

REPORT INFORMATION
  Report Type: Spontaneous
  Country: US (occurrence: US)
  Receive Date: 20170502
  Receipt Date: 20170502
  Transmission Date: 20170830
  Serious: Yes (Hospitalization)
  Sender: FDA-Public Use
  Company Number: US-ROCHE-1468423

PATIENT
  Age: 65 Year
  Sex: Female

DRUGS (9)
  1. AVASTIN [Suspect]
     Active Substance: BEVACIZUMAB
     Dosage: 2 WEEKS ON, 1 WEEK OFF, FOR 3 CYCLES?LAST DOSE RECEIVED ON 23-JUN-2014.
     Route: 065
     Dates: start: 201405, end: 20140623
  2. GEMCITABINE [Concomitant]
     Active Substance: GEMCITABINE\GEMCITABINE HYDROCHLORIDE
     Dosage: STOPPED, 2 WEEKS ON, 1 WEEK OFF, FOR 3 CYCLES
     Route: 065
     Dates: start: 201405
  3. GEMCITABINE [Concomitant]
     Active Substance: GEMCITABINE\GEMCITABINE HYDROCHLORIDE
     Indication: ADENOCARCINOMA OF THE CERVIX
     Dosage: START WINTER, 2 WEEKS ON, 1 WEEK OFF, FOR 3 CYCLES
     Route: 065
     Dates: start: 2013
  4. CISPLATIN. [Concomitant]
     Active Substance: CISPLATIN
     Dosage: STOPPED, 2 WEEKS ON, 1 WEEK OFF, FOR 3 CYCLES
     Route: 065
     Dates: start: 201405
  5. CISPLATIN. [Concomitant]
     Active Substance: CISPLATIN
     Indication: ADENOCARCINOMA OF THE CERVIX
     Dosage: START WINTER, 2 WEEKS ON, 1 WEEK OFF, FOR 3 CYCLES
     Route: 065
     Dates: start: 2013
  6. LOMOTIL (UNITED STATES) [Concomitant]
     Indication: DIARRHOEA
     Route: 065
  7. COLOSTRUM [Concomitant]
     Indication: DIARRHOEA
     Dosage: 1 SPOONFULL
     Route: 065
  8. AVASTIN [Suspect]
     Active Substance: BEVACIZUMAB
     Indication: ADENOCARCINOMA OF THE CERVIX
     Dosage: START WINTER, 2 WEEKS ON, 1 WEEK OFF, FOR 3 CYCLES
     Route: 065
     Dates: start: 2013
  9. CISPLATIN. [Concomitant]
     Active Substance: CISPLATIN
     Route: 065
     Dates: start: 2002

REACTIONS (2)
  - Diverticulitis [Recovered/Resolved]
  - Abdominal pain upper [Recovered/Resolved]

NARRATIVE: CASE EVENT DATE: 20140629
